FAERS Safety Report 4386019-8 (Version None)
Quarter: 2004Q2

REPORT INFORMATION
  Report Type: 
  Country: None (occurrence: None)
  Receive Date: 20040628
  Receipt Date: 20040621
  Transmission Date: 20050107
  Serious: Yes (Death)
  Sender: FDA-Public Use
  Company Number: IE-MERCK-0406GBR00184

PATIENT
  Age: 79 Year
  Sex: Male

DRUGS (3)
  1. ASPIRIN [Suspect]
     Route: 048
  2. BUMETANIDE [Suspect]
     Route: 048
  3. VIOXX [Suspect]
     Route: 048

REACTIONS (1)
  - RENAL IMPAIRMENT [None]
